FAERS Safety Report 12994199 (Version 2)
Quarter: 2016Q4

REPORT INFORMATION
  Report Type: Spontaneous
  Country: FR (occurrence: FR)
  Receive Date: 20161202
  Receipt Date: 20161219
  Transmission Date: 20170207
  Serious: Yes (Hospitalization)
  Sender: FDA-Public Use
  Company Number: FR-PFIZER INC-2016559906

PATIENT
  Age: 79 Year
  Sex: Male

DRUGS (7)
  1. PREVISCAN [Concomitant]
     Active Substance: FLUINDIONE
  2. TRIATEC [Concomitant]
     Active Substance: RAMIPRIL
  3. CORDARONE [Concomitant]
     Active Substance: AMIODARONE HYDROCHLORIDE
  4. LASILIX [Concomitant]
     Active Substance: FUROSEMIDE
  5. CORDARONE [Suspect]
     Active Substance: AMIODARONE HYDROCHLORIDE
     Indication: ATRIAL FIBRILLATION
     Dosage: 0.7143 DOSAGE FORM 5 TIMES PER WEEK)
     Route: 048
     Dates: start: 201507, end: 20161009
  6. PERMIXON [Concomitant]
     Active Substance: SAW PALMETTO
  7. LERCANIDIPINE [Concomitant]
     Active Substance: LERCANIDIPINE

REACTIONS (2)
  - Interstitial lung disease [Recovering/Resolving]
  - Shock [Recovering/Resolving]

NARRATIVE: CASE EVENT DATE: 201609
